FAERS Safety Report 4829566-4 (Version None)
Quarter: 2005Q4

REPORT INFORMATION
  Report Type: 
  Country: None (occurrence: None)
  Receive Date: 20051116
  Receipt Date: 20050916
  Transmission Date: 20060501
  Serious: Yes (Death, Hospitalization)
  Sender: FDA-Public Use
  Company Number: GB-BRISTOL-MYERS SQUIBB COMPANY-13115654

PATIENT
  Age: 57 Year
  Sex: Female

DRUGS (2)
  1. CISPLATIN [Suspect]
     Indication: NON-SMALL CELL LUNG CANCER
  2. ETOPOSIDE [Suspect]
     Indication: NON-SMALL CELL LUNG CANCER

REACTIONS (5)
  - DEHYDRATION [None]
  - DIARRHOEA [None]
  - NEUTROPENIA [None]
  - NEUTROPENIC SEPSIS [None]
  - RENAL FAILURE ACUTE [None]
